FAERS Safety Report 10058378 (Version 1)
Quarter: 2014Q2

REPORT INFORMATION
  Report Type: Spontaneous
  Country: US (occurrence: US)
  Receive Date: 20140404
  Receipt Date: 20140404
  Transmission Date: 20141212
  Serious: No
  Sender: FDA-Public Use
  Company Number: US-BAYER-2014-050465

PATIENT
  Age: 77 Year
  Sex: Male
  Weight: 102.4 kg

DRUGS (2)
  1. ALEVE TABLET [Suspect]
     Indication: ANALGESIC THERAPY
     Dosage: 1 DF, QD
     Route: 048
     Dates: start: 2014
  2. LISINOPRIL [Concomitant]

REACTIONS (2)
  - Skin discolouration [Not Recovered/Not Resolved]
  - Incorrect drug administration duration [None]
